FAERS Safety Report 11046684 (Version 1)
Quarter: 2015Q2

REPORT INFORMATION
  Report Type: Spontaneous
  Country: CA (occurrence: CA)
  Receive Date: 20150420
  Receipt Date: 20150420
  Transmission Date: 20150821
  Serious: Yes (Life-Threatening, Hospitalization, Other)
  Sender: FDA-Public Use
  Company Number: CA-ASTRAZENECA-2015SE35563

PATIENT
  Age: 47 Year
  Sex: Female
  Weight: 64 kg

DRUGS (3)
  1. NEXIUM [Suspect]
     Active Substance: ESOMEPRAZOLE MAGNESIUM
     Indication: GASTROOESOPHAGEAL REFLUX DISEASE
     Route: 048
  2. PALAFER [Concomitant]
     Active Substance: FERROUS FUMARATE
  3. METOPROLOL [Concomitant]
     Active Substance: METOPROLOL

REACTIONS (10)
  - Chvostek^s sign [Recovering/Resolving]
  - Hypertension [Recovering/Resolving]
  - Hypoaesthesia [Recovering/Resolving]
  - Computerised tomogram abnormal [Recovering/Resolving]
  - Tetany [Recovering/Resolving]
  - Blood calcium decreased [Recovering/Resolving]
  - Blood magnesium decreased [Recovering/Resolving]
  - Blood potassium decreased [Recovering/Resolving]
  - Cerebrovascular accident [Recovering/Resolving]
  - Type 2 diabetes mellitus [Recovering/Resolving]
